FAERS Safety Report 16818101 (Version 2)
Quarter: 2019Q4

REPORT INFORMATION
  Report Type: Report from Study
  Country: FR (occurrence: FR)
  Receive Date: 20190917
  Receipt Date: 20191104
  Transmission Date: 20200122
  Serious: Yes (Hospitalization)
  Sender: FDA-Public Use
  Company Number: FR-JNJFOC-20190907156

PATIENT
  Age: 47 Year
  Sex: Female

DRUGS (10)
  1. SOLACY                             /00044201/ [Concomitant]
     Indication: RHINITIS ALLERGIC
     Route: 048
     Dates: start: 20170415
  2. QUETIAPINE. [Concomitant]
     Active Substance: QUETIAPINE
     Route: 048
     Dates: start: 20180411
  3. CHLORMADINONE [Concomitant]
     Active Substance: CHLORMADINONE
     Indication: ORAL CONTRACEPTION
     Route: 048
  4. OMEPRAZOLE. [Concomitant]
     Active Substance: OMEPRAZOLE
     Indication: ABDOMINAL PAIN
     Route: 048
  5. ALVERINE CITRATE W/SIMETICONE [Concomitant]
     Indication: ABDOMINAL PAIN
     Route: 048
  6. ESKETAMINE [Suspect]
     Active Substance: ESKETAMINE
     Indication: DEPRESSION
     Dosage: MED KIT NUMBER: 38417-1, -2, -3
     Dates: start: 20171011, end: 20190820
  7. LORAZEPAM. [Concomitant]
     Active Substance: LORAZEPAM
     Route: 048
  8. SERTRALINE [Concomitant]
     Active Substance: SERTRALINE HYDROCHLORIDE
     Route: 048
     Dates: start: 20170731
  9. INNOHEP [Concomitant]
     Active Substance: TINZAPARIN SODIUM
     Indication: PHLEBITIS
     Route: 058
     Dates: start: 20190906, end: 20190920
  10. LEVOCETIRIZINE [Concomitant]
     Active Substance: LEVOCETIRIZINE
     Indication: LARYNGITIS
     Route: 048
     Dates: start: 20180424

REACTIONS (1)
  - Ankle fracture [Recovered/Resolved]

NARRATIVE: CASE EVENT DATE: 20190903
